FAERS Safety Report 12845640 (Version 2)
Quarter: 2018Q4

REPORT INFORMATION
  Report Type: Report from Study
  Country: HU (occurrence: HU)
  Receive Date: 20161013
  Receipt Date: 20181004
  Transmission Date: 20190204
  Serious: Yes (Hospitalization)
  Sender: FDA-Public Use
  Company Number: HU-B.I. PHARMACEUTICALS,INC./RIDGEFIELD-2016-BI-61881BI

PATIENT
  Age: 80 Year
  Sex: Female
  Weight: 65 kg

DRUGS (14)
  1. ASPIRIN. [Concomitant]
     Active Substance: ASPIRIN
     Indication: CORONARY ARTERY DISEASE
     Route: 048
     Dates: start: 20080311
  2. DOLFORIN [Concomitant]
     Active Substance: FENTANYL
     Indication: INTERVERTEBRAL DISC DISORDER
     Route: 062
     Dates: start: 20141111
  3. BI 1356 [Suspect]
     Active Substance: LINAGLIPTIN
     Indication: TYPE 2 DIABETES MELLITUS
     Route: 048
     Dates: start: 20111018
  4. CITROCALCIUM [Concomitant]
     Indication: OSTEOPOROSIS
     Route: 048
     Dates: start: 20141111
  5. RIVOTRIL [Concomitant]
     Active Substance: CLONAZEPAM
     Indication: DEPRESSION
     Route: 048
     Dates: start: 20080321
  6. L-THYROXIN [Concomitant]
     Active Substance: LEVOTHYROXINE SODIUM
     Indication: HYPOTHYROIDISM
     Route: 048
     Dates: start: 1992
  7. YAROCEN [Concomitant]
     Indication: DEPRESSION
     Route: 048
     Dates: start: 20150305
  8. PENTOXYL EP [Concomitant]
     Indication: HYPERTENSION
     Route: 048
     Dates: start: 20141111
  9. VELAXIN [Concomitant]
     Indication: DEPRESSION
     Route: 048
     Dates: start: 20150305
  10. ATORIS [Concomitant]
     Active Substance: ATORVASTATIN CALCIUM
     Indication: HYPERCHOLESTEROLAEMIA
     Route: 048
     Dates: start: 20090211
  11. NOLPAZA [Concomitant]
     Active Substance: PANTOPRAZOLE SODIUM
     Indication: PROPHYLAXIS AGAINST GASTROINTESTINAL ULCER
     Route: 048
     Dates: start: 20090211
  12. VITAMIN D3 [Concomitant]
     Active Substance: CHOLECALCIFEROL
     Indication: OSTEOPOROSIS
     Dosage: DAILY DOSE AND DOSE PER APPLICATION- 1000NE
     Route: 048
     Dates: start: 20110413
  13. SPIRON [Concomitant]
     Indication: CARDIAC FAILURE
     Route: 048
     Dates: start: 20110927
  14. NITRO-DUR [Concomitant]
     Active Substance: NITROGLYCERIN
     Indication: ANGINA PECTORIS
     Route: 062
     Dates: start: 20141117

REACTIONS (1)
  - Hiatus hernia [Recovered/Resolved]

NARRATIVE: CASE EVENT DATE: 20160823
